FAERS Safety Report 20138842 (Version 1)
Quarter: 2021Q4

REPORT INFORMATION
  Report Type: Spontaneous
  Country: CH (occurrence: CH)
  Receive Date: 20211202
  Receipt Date: 20211202
  Transmission Date: 20220303
  Serious: Yes (Hospitalization, Other)
  Sender: FDA-Public Use
  Company Number: CH-Accord-246310

PATIENT
  Sex: Male

DRUGS (2)
  1. CLOZAPINE [Suspect]
     Active Substance: CLOZAPINE
     Indication: Schizophrenia
     Dosage: 450 MG/DAY, 175 MG/DAY
     Dates: start: 201605
  2. PALIPERIDONE [Concomitant]
     Active Substance: PALIPERIDONE
     Indication: Schizophrenia
     Dosage: INCREASED TO 12 MG/DAY

REACTIONS (3)
  - Constipation [Recovered/Resolved]
  - Ileus [Recovered/Resolved]
  - Volvulus [Recovered/Resolved]

NARRATIVE: CASE EVENT DATE: 20160901
